FAERS Safety Report 5246387-1 (Version None)
Quarter: 2007Q1

REPORT INFORMATION
  Report Type: 
  Country: None (occurrence: None)
  Receive Date: 20070226
  Receipt Date: 20070214
  Transmission Date: 20070707
  Serious: Yes (Other)
  Sender: FDA-Public Use
  Company Number: HQWYE676114FEB07

PATIENT
  Age: 54 Year
  Sex: Male

DRUGS (3)
  1. PANTOPRAZOLE SODIUM [Suspect]
     Indication: GASTRITIS
     Route: 048
     Dates: start: 20061115
  2. PANTOPRAZOLE SODIUM [Suspect]
     Indication: DUODENITIS
  3. ACECOMB [Suspect]
     Indication: HYPERTENSION
     Dosage: ^.5 DF DAILY^
     Route: 048

REACTIONS (1)
  - SEBORRHOEIC DERMATITIS [None]
